FAERS Safety Report 6718539-2 (Version None)
Quarter: 2010Q2

REPORT INFORMATION
  Report Type: 
  Country: None (occurrence: None)
  Receive Date: 20100510
  Receipt Date: 20100505
  Transmission Date: 20101027
  Serious: Yes (Death)
  Sender: FDA-Public Use
  Company Number: US-GILEAD-2010-0028987

PATIENT
  Sex: Female
  Weight: 103.06 kg

DRUGS (5)
  1. LETAIRIS [Suspect]
     Indication: PULMONARY ARTERIAL HYPERTENSION
     Route: 048
     Dates: start: 20090310, end: 20100404
  2. WARFARIN SODIUM [Concomitant]
  3. LASIX [Concomitant]
  4. LOTREL [Concomitant]
  5. MEGESTROL ACETATE [Concomitant]

REACTIONS (1)
  - DEATH [None]
